FAERS Safety Report 9093319 (Version 2)
Quarter: 2013Q2

REPORT INFORMATION
  Report Type: Spontaneous
  Country: US (occurrence: US)
  Receive Date: 20130218
  Receipt Date: 20130417
  Transmission Date: 20140414
  Serious: No
  Sender: FDA-Public Use
  Company Number: US-009507513-1302USA005740

PATIENT
  Age: 52 Year
  Sex: Male
  Weight: 137.41 kg

DRUGS (7)
  1. PEG-INTRON [Suspect]
     Dosage: 150 MCG/0.5 ML, QW
     Route: 058
  2. RIBAVIRIN [Suspect]
     Route: 048
  3. VICTRELIS [Suspect]
     Dosage: 200 MG, UNK
     Route: 048
  4. ATENOLOL [Concomitant]
     Route: 048
  5. PRILOSEC [Concomitant]
     Route: 048
  6. ALEVE [Concomitant]
     Route: 048
  7. BENZONATATE [Concomitant]
     Route: 048

REACTIONS (6)
  - Injection site erythema [Unknown]
  - Dysgeusia [Unknown]
  - Anorectal discomfort [Unknown]
  - Rash [Unknown]
  - Injection site irritation [Unknown]
  - Dysgeusia [Unknown]
